FAERS Safety Report 13601746 (Version 4)
Quarter: 2017Q3

REPORT INFORMATION
  Report Type: Spontaneous
  Country: JP (occurrence: JP)
  Receive Date: 20170601
  Receipt Date: 20170815
  Transmission Date: 20171127
  Serious: Yes (Hospitalization)
  Sender: FDA-Public Use
  Company Number: JP-ACTELION-A-CH2017-154371

PATIENT
  Age: 25 Year
  Sex: Female
  Weight: 45.7 kg

DRUGS (7)
  1. BISOPROLOL [Concomitant]
     Active Substance: BISOPROLOL
  2. THIURAGYL [Concomitant]
     Active Substance: PROPYLTHIOURACIL
  3. ADCIRCA [Concomitant]
     Active Substance: TADALAFIL
  4. EPOPROSTENOL ACT [Suspect]
     Active Substance: EPOPROSTENOL
     Indication: PULMONARY ARTERIAL HYPERTENSION
     Dosage: UNK
     Route: 042
     Dates: start: 201506
  5. EPOPROSTENOL ACT [Suspect]
     Active Substance: EPOPROSTENOL
     Dosage: 66.8 NG/KG, CONT INFUS
     Route: 042
     Dates: start: 201612
  6. TRACLEER [Concomitant]
     Active Substance: BOSENTAN
     Indication: PULMONARY ARTERIAL HYPERTENSION
     Dosage: 62.5 UNK, UNK
     Route: 048
  7. FEXOFENADINE HYDROCHLORIDE. [Concomitant]
     Active Substance: FEXOFENADINE HYDROCHLORIDE

REACTIONS (3)
  - Urticaria chronic [Not Recovered/Not Resolved]
  - Platelet transfusion [Unknown]
  - Platelet count decreased [Not Recovered/Not Resolved]

NARRATIVE: CASE EVENT DATE: 201506
